FAERS Safety Report 8856510 (Version 2)
Quarter: 2012Q4

REPORT INFORMATION
  Report Type: Spontaneous
  Country: NO (occurrence: None)
  Receive Date: 20121018
  Receipt Date: 20121019
  Transmission Date: 20130627
  Serious: Yes (Hospitalization)
  Sender: FDA-Public Use
  Company Number: AUR-APL-2012-04422

PATIENT
  Age: 50 Year
  Sex: Male

DRUGS (2)
  1. METFORMIN (METFORMIN) [Suspect]
     Indication: DIABETES
  2. ONGLYZA [Suspect]
     Indication: DIABETES
     Route: 048

REACTIONS (2)
  - Acidosis [None]
  - Renal disorder [None]
